FAERS Safety Report 4945833-8 (Version None)
Quarter: 2006Q1

REPORT INFORMATION
  Report Type: 
  Country: None (occurrence: None)
  Receive Date: 20060316
  Receipt Date: 20060301
  Transmission Date: 20060701
  Serious: Yes (Other)
  Sender: FDA-Public Use
  Company Number: 2006UW04352

PATIENT
  Age: 743 Month
  Sex: Male

DRUGS (5)
  1. SEROQUEL [Suspect]
     Indication: MANIA
     Route: 048
     Dates: start: 20050301, end: 20050801
  2. CLONAZEPAM [Concomitant]
  3. LITHIUM [Concomitant]
  4. PROCYCLIDINE HYDROCHLORIDE 2MG TAB [Concomitant]
  5. FLUPHENAZINE [Concomitant]
     Route: 030

REACTIONS (2)
  - ENURESIS [None]
  - FALL [None]
